FAERS Safety Report 8784048 (Version 1)
Quarter: 2012Q4

REPORT INFORMATION
  Report Type: Spontaneous
  Country: US (occurrence: None)
  Receive Date: 20120829
  Receipt Date: 20120829
  Transmission Date: 20130627
  Serious: Yes (Hospitalization)
  Sender: FDA-Public Use
  Company Number: 12AE006

PATIENT
  Sex: Female

DRUGS (7)
  1. ACETAMINOPHEN [Suspect]
     Indication: MIGRAINE HEADACHE
     Route: 048
     Dates: start: 20120814
  2. ACYCLOVIR [Concomitant]
  3. AZOR [Concomitant]
  4. ESTROGENS [Concomitant]
  5. METOPROLOL [Concomitant]
  6. SUCCINATE [Concomitant]
  7. NEXIUM [Concomitant]

REACTIONS (1)
  - Gastritis [None]
